FAERS Safety Report 6736940-8 (Version None)
Quarter: 2010Q2

REPORT INFORMATION
  Report Type: 
  Country: None (occurrence: None)
  Receive Date: 20100521
  Receipt Date: 20100507
  Transmission Date: 20101027
  Serious: Yes (Death, Hospitalization, Other)
  Sender: FDA-Public Use
  Company Number: GB-BRISTOL-MYERS SQUIBB COMPANY-15058761

PATIENT
  Age: 46 Year
  Sex: Male

DRUGS (12)
  1. CARBOPLATIN [Suspect]
  2. MORPHINE SULFATE [Suspect]
     Indication: PAIN
  3. WARFARIN SODIUM [Suspect]
     Indication: PULMONARY EMBOLISM
  4. WARFARIN SODIUM [Suspect]
     Indication: DEEP VEIN THROMBOSIS
  5. FLUDROCORTISONE [Suspect]
     Route: 042
  6. DEXAMETHASONE [Suspect]
     Indication: FATIGUE
     Route: 048
  7. NAPROXEN [Suspect]
     Indication: PAIN PROPHYLAXIS
  8. NULYTELY [Suspect]
     Indication: CONSTIPATION
  9. HYDROCORTISONE [Suspect]
     Route: 042
  10. DIAMORPHINE [Suspect]
     Route: 058
  11. KETAMINE HCL [Suspect]
  12. MIDAZOLAM HCL [Suspect]
     Route: 058

REACTIONS (9)
  - ADRENAL INSUFFICIENCY [None]
  - CONSTIPATION [None]
  - DEEP VEIN THROMBOSIS [None]
  - HYPERKALAEMIA [None]
  - HYPONATRAEMIA [None]
  - MALIGNANT NEOPLASM PROGRESSION [None]
  - PULMONARY EMBOLISM [None]
  - RENAL IMPAIRMENT [None]
  - TUMOUR HAEMORRHAGE [None]
